FAERS Safety Report 9691562 (Version 2)
Quarter: 2013Q4

REPORT INFORMATION
  Report Type: Report from Study
  Country: US (occurrence: US)
  Receive Date: 20131115
  Receipt Date: 20131115
  Transmission Date: 20140711
  Serious: Yes (Other)
  Sender: FDA-Public Use
  Company Number: US-ABBVIE-11P-163-0713389-00

PATIENT
  Age: 55 Year
  Sex: Male

DRUGS (5)
  1. HUMIRA 40 MG/0.8 ML PEN [Suspect]
     Indication: RHEUMATOID ARTHRITIS
     Dates: start: 20110207
  2. HUMIRA 40 MG/0.8 ML PEN [Suspect]
     Indication: ANKYLOSING SPONDYLITIS
  3. ADDERALL [Suspect]
     Indication: FATIGUE
  4. STRIBILD [Concomitant]
     Indication: HIV INFECTION
  5. DICLOFENAC [Concomitant]
     Indication: ARTHRITIS

REACTIONS (7)
  - Skin cancer [Unknown]
  - Prostate cancer [Unknown]
  - Fatigue [Not Recovered/Not Resolved]
  - Fatigue [Unknown]
  - Memory impairment [Unknown]
  - Migraine [Recovered/Resolved]
  - Depression [Unknown]
